FAERS Safety Report 14981591 (Version 2)
Quarter: 2018Q3

REPORT INFORMATION
  Report Type: Spontaneous
  Country: JP (occurrence: JP)
  Receive Date: 20180607
  Receipt Date: 20180717
  Transmission Date: 20181010
  Serious: Yes (Other)
  Sender: FDA-Public Use
  Company Number: PHJP2018JP011965

PATIENT
  Age: 58 Year
  Sex: Female

DRUGS (1)
  1. ZOMETA [Suspect]
     Active Substance: ZOLEDRONIC ACID
     Indication: METASTASES TO BONE
     Dosage: UNK
     Route: 041

REACTIONS (8)
  - Mouth haemorrhage [Unknown]
  - Pain in jaw [Unknown]
  - Swelling face [Unknown]
  - Bone fistula [Unknown]
  - Abscess jaw [Unknown]
  - Osteonecrosis of jaw [Unknown]
  - Impaired healing [Unknown]
  - Excessive granulation tissue [Unknown]
